FAERS Safety Report 15963217 (Version 5)
Quarter: 2020Q1

REPORT INFORMATION
  Report Type: Spontaneous
  Country: DE (occurrence: DE)
  Receive Date: 20190214
  Receipt Date: 20200324
  Transmission Date: 20200409
  Serious: Yes (Hospitalization, Other)
  Sender: FDA-Public Use
  Company Number: DE-MYLANLABS-2019M1008416

PATIENT
  Sex: Male

DRUGS (8)
  1. CLOZAPINE. [Suspect]
     Active Substance: CLOZAPINE
     Indication: PRODUCT USED FOR UNKNOWN INDICATION
     Dosage: 200 MILLIGRAM, QD
  2. CLOZAPINE. [Suspect]
     Active Substance: CLOZAPINE
     Dosage: UNK, QD
     Dates: end: 2018
  3. PAROXAT [Concomitant]
     Active Substance: PAROXETINE HYDROCHLORIDE
     Dosage: 60 MILLIGRAM, QD
     Dates: start: 2016
  4. CLOZAPINE. [Suspect]
     Active Substance: CLOZAPINE
     Dosage: 100 MILLIGRAM, QD
     Dates: end: 2016
  5. QUETIAPINE. [Concomitant]
     Active Substance: QUETIAPINE
     Dosage: UNK
  6. CLOZAPINE. [Suspect]
     Active Substance: CLOZAPINE
     Dosage: 50 MILLIGRAM, QD
     Dates: start: 2016
  7. PAROXAT [Concomitant]
     Active Substance: PAROXETINE HYDROCHLORIDE
     Dosage: UNK, QD
     Dates: end: 2018
  8. LEPONEX [Suspect]
     Active Substance: CLOZAPINE
     Indication: PRODUCT USED FOR UNKNOWN INDICATION
     Dosage: 300 MILLIGRAM, QD
     Dates: start: 2001

REACTIONS (31)
  - Schizophrenia [Unknown]
  - Obsessive thoughts [Not Recovered/Not Resolved]
  - Neck pain [Not Recovered/Not Resolved]
  - Nausea [Unknown]
  - Acne [Not Recovered/Not Resolved]
  - Virilism [Unknown]
  - Hypertrichosis [Unknown]
  - Thinking abnormal [Not Recovered/Not Resolved]
  - Discomfort [Not Recovered/Not Resolved]
  - Constipation [Not Recovered/Not Resolved]
  - Tension headache [Not Recovered/Not Resolved]
  - Muscle spasms [Not Recovered/Not Resolved]
  - Derealisation [Unknown]
  - Hyperhidrosis [Not Recovered/Not Resolved]
  - Fear [Unknown]
  - Dissociation [Unknown]
  - Disturbance in attention [Not Recovered/Not Resolved]
  - Stress [Not Recovered/Not Resolved]
  - Suicidal ideation [Unknown]
  - Dependence [Unknown]
  - Sleep deficit [Not Recovered/Not Resolved]
  - Aggression [Not Recovered/Not Resolved]
  - Headache [Not Recovered/Not Resolved]
  - Bruxism [Not Recovered/Not Resolved]
  - Suicide attempt [Unknown]
  - Altered state of consciousness [Unknown]
  - Seborrhoea [Not Recovered/Not Resolved]
  - Spinal cord disorder [Not Recovered/Not Resolved]
  - Withdrawal syndrome [Unknown]
  - Craniocerebral injury [Unknown]
  - Musculoskeletal pain [Not Recovered/Not Resolved]
